FAERS Safety Report 8970933 (Version 1)
Quarter: 2012Q4

REPORT INFORMATION
  Report Type: 
  Country: US (occurrence: US)
  Receive Date: 20121217
  Receipt Date: 20121217
  Transmission Date: 20130627
  Serious: Yes (Life-Threatening, Hospitalization, Other)
  Sender: FDA-Public Use
  Company Number: US-ROXANE LABORATORIES, INC.-2012-RO-02570RO

PATIENT
  Age: 2 Month
  Sex: Male

DRUGS (1)
  1. METHADONE [Suspect]

REACTIONS (5)
  - Respiratory failure [Recovered/Resolved]
  - Toxicity to various agents [Recovered/Resolved]
  - Drug withdrawal syndrome neonatal [Unknown]
  - Irritability [Unknown]
  - Tremor [Unknown]
